FAERS Safety Report 6312835-9 (Version None)
Quarter: 2009Q3

REPORT INFORMATION
  Report Type: 
  Country: None (occurrence: None)
  Receive Date: 20090818
  Receipt Date: 20090810
  Transmission Date: 20100115
  Serious: Yes (Other)
  Sender: FDA-Public Use
  Company Number: US-JNJFOC-20060903543

PATIENT
  Sex: Female
  Weight: 84.82 kg

DRUGS (21)
  1. RISPERDAL [Suspect]
     Indication: POST-TRAUMATIC STRESS DISORDER
  2. ZYPREXA [Suspect]
     Indication: POST-TRAUMATIC STRESS DISORDER
     Dosage: 2 WEEKS EVERY 13 WEEKS
  3. PREDNISONE [Concomitant]
  4. FLEXERIL [Concomitant]
  5. KLONAZEPAM [Concomitant]
  6. PEPCID [Concomitant]
  7. NEURONTIN [Concomitant]
  8. TUMS [Concomitant]
  9. IMITREX [Concomitant]
  10. COMPAZINE [Concomitant]
  11. PERCOCET [Concomitant]
  12. CARISOPRODOL [Concomitant]
  13. PRILOSEC [Concomitant]
     Route: 065
  14. SERZONE [Concomitant]
     Indication: DEPRESSION
  15. ZYRTEC [Concomitant]
  16. MAXAIR [Concomitant]
  17. SINGULAIR [Concomitant]
  18. DIDRONEL [Concomitant]
  19. CENTRUM [Concomitant]
  20. CELEBREX [Concomitant]
  21. AZMACORT [Concomitant]

REACTIONS (4)
  - BLOOD PROLACTIN INCREASED [None]
  - DIABETES MELLITUS [None]
  - PANCREATITIS [None]
  - WEIGHT INCREASED [None]
